FAERS Safety Report 22348102 (Version 2)
Quarter: 2023Q2

REPORT INFORMATION
  Report Type: Other
  Country: LV (occurrence: LV)
  Receive Date: 20230522
  Receipt Date: 20230530
  Transmission Date: 20230722
  Serious: Yes (Hospitalization)
  Sender: FDA-Public Use
  Company Number: LV-ALVOGEN-2023091497

PATIENT
  Age: 66 Year
  Sex: Female

DRUGS (7)
  1. DEXAMETHASONE [Suspect]
     Active Substance: DEXAMETHASONE
     Indication: COVID-19 pneumonia
     Dosage: 6 MG PO COURSE FOR 10 DAYS.
     Route: 048
  2. TOCILIZUMAB [Suspect]
     Active Substance: TOCILIZUMAB
     Indication: COVID-19 pneumonia
     Dosage: A SINGLE INFUSION OF IL-6 MONOCLONAL ANTIBODY.
     Route: 040
  3. low weight heparin [Concomitant]
     Indication: COVID-19 pneumonia
  4. PERINDOPRIL [Concomitant]
     Active Substance: PERINDOPRIL
     Indication: Product used for unknown indication
  5. AMLODIPINE [Concomitant]
     Active Substance: AMLODIPINE BESYLATE
     Indication: Product used for unknown indication
  6. INDAPAMIDE [Concomitant]
     Active Substance: INDAPAMIDE
     Indication: Product used for unknown indication
  7. METFORMIN [Concomitant]
     Active Substance: METFORMIN HYDROCHLORIDE
     Indication: Product used for unknown indication

REACTIONS (8)
  - Extradural abscess [Recovered/Resolved]
  - Psoas abscess [Recovered/Resolved]
  - Paraspinal abscess [Recovering/Resolving]
  - Back pain [Recovered/Resolved]
  - Pyrexia [Recovered/Resolved]
  - Leukocytosis [Recovered/Resolved]
  - Neutrophilia [Recovered/Resolved]
  - Staphylococcal bacteraemia [Unknown]
